FAERS Safety Report 8351234-5 (Version None)
Quarter: 2012Q2

REPORT INFORMATION
  Report Type: 
  Country: None (occurrence: None)
  Receive Date: 20120510
  Receipt Date: 20120504
  Transmission Date: 20120825
  Serious: Yes (Other)
  Sender: FDA-Public Use
  Company Number: GB-PFIZER INC-2012049451

PATIENT
  Age: 75 Year
  Sex: Male

DRUGS (12)
  1. FUROSEMIDE [Suspect]
     Dosage: UNK
  2. WARFARIN SODIUM [Suspect]
     Indication: ATRIAL FIBRILLATION
     Dosage: UNK
  3. CYSTEINE [Suspect]
     Dosage: UNK
  4. METFORMIN HCL [Suspect]
     Dosage: UNK
  5. PREDNISOLONE [Suspect]
     Indication: CHRONIC OBSTRUCTIVE PULMONARY DISEASE
     Dosage: UNK
  6. ATORVASTATIN CALCIUM [Suspect]
     Dosage: UNK
  7. FORMOTEROL FUMARATE [Suspect]
     Dosage: UNK
     Route: 055
  8. SYMBICORT [Concomitant]
  9. RAMIPRIL [Suspect]
     Dosage: 5 MG, UNK
  10. ALBUTEROL [Suspect]
     Dosage: UNK
  11. SPIRIVA [Concomitant]
  12. VERAPAMIL [Suspect]
     Indication: ATRIAL FIBRILLATION
     Dosage: UNK

REACTIONS (1)
  - HALLUCINATION [None]
